FAERS Safety Report 24366570 (Version 1)
Quarter: 2024Q3

REPORT INFORMATION
  Report Type: Spontaneous
  Country: US (occurrence: None)
  Receive Date: 20240925
  Receipt Date: 20240925
  Transmission Date: 20241016
  Serious: No
  Sender: Public
  Company Number: None

PATIENT
  Age: 69 Year
  Sex: Male
  Weight: 122.4 kg

DRUGS (14)
  1. OZEMPIC [Suspect]
     Active Substance: SEMAGLUTIDE
     Indication: Weight control
     Dosage: OTHER QUANTITY : 1 INJECTION(S);?OTHER FREQUENCY : ONCE A WEEK;?
     Route: 058
  2. AMLODIPINE [Concomitant]
     Active Substance: AMLODIPINE BESYLATE
  3. ENTRESTO [Concomitant]
     Active Substance: SACUBITRIL\VALSARTAN
  4. AMIODARONE [Concomitant]
     Active Substance: AMIODARONE
  5. LEQVIO [Concomitant]
     Active Substance: INCLISIRAN SODIUM
  6. TERAZOSIN [Concomitant]
     Active Substance: TERAZOSIN HYDROCHLORIDE
  7. CITALOPRAM [Concomitant]
     Active Substance: CITALOPRAM
  8. MAGNESIUM [Concomitant]
     Active Substance: MAGNESIUM
  9. ASPIRIN [Concomitant]
     Active Substance: ASPIRIN
  10. acemetophen [Concomitant]
  11. 1a day vitamin [Concomitant]
  12. DEVICE [Concomitant]
     Active Substance: DEVICE
  13. DEVICE [Concomitant]
     Active Substance: DEVICE
  14. DEVICE [Concomitant]
     Active Substance: DEVICE

REACTIONS (5)
  - Fatigue [None]
  - Hypersomnia [None]
  - Lethargy [None]
  - Infrequent bowel movements [None]
  - Chest pain [None]

NARRATIVE: CASE EVENT DATE: 20240920
